FAERS Safety Report 10473477 (Version 1)
Quarter: 2014Q3

REPORT INFORMATION
  Report Type: Report from Study
  Country: AR (occurrence: AR)
  Receive Date: 20140924
  Receipt Date: 20140924
  Transmission Date: 20150326
  Serious: Yes (Hospitalization, Disabling)
  Sender: FDA-Public Use
  Company Number: PHHY2014AR124603

PATIENT
  Age: 73 Year
  Sex: Female

DRUGS (1)
  1. EXFORGE [Suspect]
     Active Substance: AMLODIPINE BESYLATE\VALSARTAN
     Indication: HYPERTENSION
     Dosage: 1 DF (160/5), DAILY

REACTIONS (6)
  - Osteoarthritis [Not Recovered/Not Resolved]
  - Tachycardia [Not Recovered/Not Resolved]
  - Conjunctivitis [Recovered/Resolved]
  - Tendonitis [Not Recovered/Not Resolved]
  - Cholelithiasis [Recovered/Resolved]
  - Joint swelling [Not Recovered/Not Resolved]

NARRATIVE: CASE EVENT DATE: 201311
